FAERS Safety Report 10074315 (Version 1)
Quarter: 2014Q2

REPORT INFORMATION
  Report Type: Spontaneous
  Country: US (occurrence: US)
  Receive Date: 20140411
  Receipt Date: 20140411
  Transmission Date: 20141212
  Serious: No
  Sender: FDA-Public Use
  Company Number: US-GILEAD-2014-0099387

PATIENT
  Age: 53 Year
  Sex: Female

DRUGS (13)
  1. LETAIRIS [Suspect]
     Indication: PULMONARY HYPERTENSION
     Dosage: 10 MG, QD
     Route: 048
     Dates: start: 20140305
  2. FUROSEMIDE [Suspect]
     Indication: PRODUCT USED FOR UNKNOWN INDICATION
     Route: 065
  3. KLOR-CON [Suspect]
     Indication: PRODUCT USED FOR UNKNOWN INDICATION
     Route: 065
  4. CHERATUSSIN AC [Concomitant]
  5. PROAIR                             /00139502/ [Concomitant]
  6. SYMBICORT [Concomitant]
  7. BACLOFEN [Concomitant]
  8. DIGOXIN [Concomitant]
  9. PLAQUENIL                          /00072603/ [Concomitant]
  10. AZATHIOPRINE [Concomitant]
  11. PROTONIX [Concomitant]
  12. PREDNISONE [Concomitant]
  13. ZANTAC [Concomitant]

REACTIONS (1)
  - Muscle spasms [Unknown]
